FAERS Safety Report 5320834-9 (Version None)
Quarter: 2007Q2

REPORT INFORMATION
  Report Type: 
  Country: None (occurrence: None)
  Receive Date: 20070509
  Receipt Date: 20070411
  Transmission Date: 20071010
  Serious: Yes (Hospitalization, Other)
  Sender: FDA-Public Use
  Company Number: JP-MERCK-0704USA03148

PATIENT
  Age: 27 Year
  Sex: Female

DRUGS (12)
  1. SINGULAIR [Suspect]
     Indication: ASTHMA
     Route: 048
  2. PULMICORT [Concomitant]
     Indication: ASTHMA
  3. SEREVENT [Concomitant]
     Indication: ASTHMA
  4. BETAMETHASONE [Concomitant]
     Indication: ASTHMA
     Route: 048
  5. BETAMETHASONE [Concomitant]
     Route: 048
     Dates: start: 20040209
  6. BETAMETHASONE [Concomitant]
     Route: 048
     Dates: start: 20040501
  7. THEOPHYLLINE [Concomitant]
     Indication: ASTHMA
     Route: 048
  8. ALBUTEROL [Concomitant]
     Indication: ASTHMA
     Dates: start: 20040209
  9. [THERAPY UNSPECIFIED] [Concomitant]
     Indication: ASTHMA
     Route: 041
     Dates: start: 20040209
  10. AMINOPHYLLINE [Concomitant]
     Indication: ASTHMA
     Route: 051
     Dates: start: 20040209
  11. XYLOCAINE [Concomitant]
     Indication: ASTHMA
     Dates: start: 20040303, end: 20040309
  12. XYLOCAINE [Concomitant]
     Dates: start: 20040310

REACTIONS (4)
  - ASTHMA [None]
  - DRUG EXPOSURE DURING PREGNANCY [None]
  - NASOPHARYNGITIS [None]
  - PREMATURE LABOUR [None]
